FAERS Safety Report 5779461-1 (Version None)
Quarter: 2008Q2

REPORT INFORMATION
  Report Type: 
  Country: None (occurrence: None)
  Receive Date: 20080619
  Receipt Date: 20080609
  Transmission Date: 20081010
  Serious: No
  Sender: FDA-Public Use
  Company Number: US-PFIZER INC-2007029653

PATIENT
  Sex: Female
  Weight: 64 kg

DRUGS (2)
  1. BEXTRA [Suspect]
     Indication: ARTHRITIS
     Dates: start: 20041001, end: 20050101
  2. VIOXX [Suspect]

REACTIONS (1)
  - NO ADVERSE EVENT [None]
